FAERS Safety Report 7971081-3 (Version None)
Quarter: 2011Q4

REPORT INFORMATION
  Report Type: 
  Country: None (occurrence: None)
  Receive Date: 20111212
  Receipt Date: 20111212
  Transmission Date: 20120403
  Serious: Yes (Hospitalization, Disabling)
  Sender: FDA-Public Use
  Company Number: None

PATIENT
  Age: 36 Year
  Sex: Female
  Weight: 68.038 kg

DRUGS (1)
  1. MIRAPEX [Suspect]
     Indication: FIBROMYALGIA
     Dosage: 5 MG
     Route: 048
     Dates: start: 20060108, end: 20080918

REACTIONS (11)
  - SOMNOLENCE [None]
  - SUICIDAL IDEATION [None]
  - BANKRUPTCY [None]
  - BLADDER DISORDER [None]
  - OBSESSIVE-COMPULSIVE DISORDER [None]
  - CONVULSION [None]
  - POOR PERSONAL HYGIENE [None]
  - MENTAL IMPAIRMENT [None]
  - PSYCHOMOTOR HYPERACTIVITY [None]
  - OSTEITIS [None]
  - BONE DISORDER [None]
